FAERS Safety Report 13558649 (Version 1)
Quarter: 2017Q2

REPORT INFORMATION
  Report Type: Spontaneous
  Country: US (occurrence: US)
  Receive Date: 20170518
  Receipt Date: 20170518
  Transmission Date: 20170830
  Serious: Yes (Hospitalization)
  Sender: FDA-Public Use
  Company Number: None

PATIENT
  Age: 55 Year
  Sex: Male
  Weight: 84.6 kg

DRUGS (2)
  1. DEXAMETHASONE. [Concomitant]
     Active Substance: DEXAMETHASONE
  2. MEMANTINE HYDROCHLORIDE. [Suspect]
     Active Substance: MEMANTINE HYDROCHLORIDE
     Dates: end: 20170511

REACTIONS (7)
  - Retching [None]
  - Vision blurred [None]
  - Blood glucose increased [None]
  - Nausea [None]
  - Hyperosmolar state [None]
  - Polyuria [None]
  - Polydipsia [None]

NARRATIVE: CASE EVENT DATE: 20170512
